FAERS Safety Report 14015553 (Version 1)
Quarter: 2017Q3

REPORT INFORMATION
  Report Type: Spontaneous
  Country: US (occurrence: None)
  Receive Date: 20170927
  Receipt Date: 20170927
  Transmission Date: 20171128
  Serious: Yes (Hospitalization)
  Sender: FDA-Public Use
  Company Number: None

PATIENT
  Age: 6 Year
  Sex: Female

DRUGS (14)
  1. POLYETH GLYC [Concomitant]
     Active Substance: POLYETHYLENE GLYCOLS
  2. NEXIUM [Concomitant]
     Active Substance: ESOMEPRAZOLE MAGNESIUM
  3. HYDROCO/APAP [Concomitant]
     Active Substance: ACETAMINOPHEN\HYDROCODONE
  4. CLONAZEP [Concomitant]
  5. E.E.S. GRAN [Concomitant]
  6. LUPRON DEPOT-PED [Suspect]
     Active Substance: LEUPROLIDE ACETATE
     Indication: PRODUCT USED FOR UNKNOWN INDICATION
     Dosage: 1ML EVERY 28 DAYS IM
     Route: 030
     Dates: start: 20160809
  7. DIAZEPAM. [Concomitant]
     Active Substance: DIAZEPAM
  8. POLY-VI-SOL [Concomitant]
     Active Substance: VITAMINS
  9. VALPROIC ACID. [Concomitant]
     Active Substance: VALPROIC ACID
  10. FLUTICASONE. [Concomitant]
     Active Substance: FLUTICASONE
  11. MONTELUKAST [Concomitant]
     Active Substance: MONTELUKAST SODIUM
  12. MULTIVITAMIN [Concomitant]
     Active Substance: VITAMINS
  13. QVAR [Concomitant]
     Active Substance: BECLOMETHASONE DIPROPIONATE
  14. ALBUTEROL. [Concomitant]
     Active Substance: ALBUTEROL

REACTIONS (1)
  - Renal failure [None]

NARRATIVE: CASE EVENT DATE: 201708
